FAERS Safety Report 10186810 (Version 2)
Quarter: 2014Q2

REPORT INFORMATION
  Report Type: Spontaneous
  Country: US (occurrence: US)
  Receive Date: 20140521
  Receipt Date: 20140521
  Transmission Date: 20141212
  Serious: Yes (Other)
  Sender: FDA-Public Use
  Company Number: US-PFIZER INC-2004026063

PATIENT
  Age: 83 Year
  Sex: Male
  Weight: 61 kg

DRUGS (10)
  1. AZITHROMYCIN [Suspect]
     Indication: PNEUMONIA
     Dosage: 500 MG, DAILY
     Route: 042
     Dates: start: 20020515, end: 20020517
  2. WARFARIN [Interacting]
     Indication: ATRIAL FIBRILLATION
     Dosage: UNK
     Route: 048
     Dates: end: 20020515
  3. CEFTRIAXONE SODIUM [Concomitant]
     Dosage: UNK
     Route: 042
     Dates: start: 20020515, end: 20020517
  4. IRON PREPARATIONS [Concomitant]
     Route: 065
  5. METOPROLOL TARTRATE [Concomitant]
     Route: 065
  6. IPRATROPIUM [Concomitant]
     Route: 065
  7. ALBUTEROL [Concomitant]
     Route: 065
  8. ISOSORBIDE DINITRATE [Concomitant]
     Route: 065
  9. RANITIDINE [Concomitant]
     Route: 065
  10. ERYTHROPOIETIN [Concomitant]
     Route: 058

REACTIONS (3)
  - Drug interaction [Recovered/Resolved]
  - Hypoprothrombinaemia [Recovered/Resolved]
  - International normalised ratio increased [Recovered/Resolved]
